FAERS Safety Report 7377402-7 (Version None)
Quarter: 2011Q1

REPORT INFORMATION
  Report Type: 
  Country: None (occurrence: None)
  Receive Date: 20110328
  Receipt Date: 20110321
  Transmission Date: 20110831
  Serious: No
  Sender: FDA-Public Use
  Company Number: US-PFIZER INC-2011064466

PATIENT

DRUGS (1)
  1. SUTENT [Suspect]
     Indication: THYROID CANCER
     Dosage: UNK

REACTIONS (1)
  - DYSPHAGIA [None]
